FAERS Safety Report 4317841-1 (Version None)
Quarter: 2004Q1

REPORT INFORMATION
  Report Type: 
  Country: None (occurrence: None)
  Receive Date: 20040316
  Receipt Date: 20040310
  Transmission Date: 20041129
  Serious: Yes (Life-Threatening, Hospitalization)
  Sender: FDA-Public Use
  Company Number: 200410797EU

PATIENT
  Age: 71 Year
  Sex: Male

DRUGS (2)
  1. SEGURIL [Suspect]
     Indication: HEPATIC CIRRHOSIS
     Route: 048
     Dates: start: 20030801, end: 20031221
  2. ALDACTONE [Concomitant]
     Indication: HEPATIC CIRRHOSIS
     Dates: start: 20030801, end: 20031221

REACTIONS (3)
  - DIARRHOEA [None]
  - RENAL FAILURE ACUTE [None]
  - VOMITING [None]
